FAERS Safety Report 10026800 (Version 2)
Quarter: 2014Q2

REPORT INFORMATION
  Report Type: Report from Study
  Country: IT (occurrence: IT)
  Receive Date: 20140321
  Receipt Date: 20140530
  Transmission Date: 20141212
  Serious: Yes (Other)
  Sender: FDA-Public Use
  Company Number: IT-SHIRE-IT201400415

PATIENT
  Age: 20 Year
  Sex: Female
  Weight: 77 kg

DRUGS (4)
  1. 422 (ANAGRELIDE) [Suspect]
     Indication: ESSENTIAL THROMBOCYTHAEMIA
     Dosage: UNK, UNKNOWN
     Route: 048
     Dates: start: 20071218
  2. 422 (ANAGRELIDE) [Suspect]
     Dosage: 0.5 MG, 1X/DAY:QD
     Route: 048
     Dates: start: 20060718, end: 20060730
  3. 422 (ANAGRELIDE) [Suspect]
     Dosage: 1 MG, 1X/DAY:QD
     Dates: start: 20060731, end: 20060924
  4. 422 (ANAGRELIDE) [Suspect]
     Dosage: 1.5 MG, 1X/DAY:QD
     Route: 048
     Dates: start: 20060925, end: 20071217

REACTIONS (1)
  - Myelofibrosis [Not Recovered/Not Resolved]
